FAERS Safety Report 14666440 (Version 1)
Quarter: 2018Q1

REPORT INFORMATION
  Report Type: Spontaneous
  Country: US (occurrence: US)
  Receive Date: 20180320
  Receipt Date: 20180320
  Transmission Date: 20180509
  Serious: No
  Sender: FDA-Public Use
  Company Number: None

PATIENT
  Sex: Female

DRUGS (1)
  1. STELARA [Suspect]
     Active Substance: USTEKINUMAB
     Indication: CROHN^S DISEASE
     Dosage: 90MG EVERY 8 WEEKS SUBQ
     Route: 058
     Dates: start: 20180121

REACTIONS (3)
  - Diarrhoea [None]
  - Palpitations [None]
  - Alopecia [None]
